FAERS Safety Report 6104967-5 (Version None)
Quarter: 2009Q1

REPORT INFORMATION
  Report Type: 
  Country: None (occurrence: None)
  Receive Date: 20090304
  Receipt Date: 20090220
  Transmission Date: 20090719
  Serious: Yes (Other)
  Sender: FDA-Public Use
  Company Number: 2009S1003228

PATIENT
  Sex: Female

DRUGS (3)
  1. LORAZEPAM [Suspect]
     Indication: ANXIETY
     Dosage: 0 5MG; AS NEEDED ORAL;  0.25 MG; AS NEEDED; ORAL; .125 MG;AS NEEDED; ORAL
     Route: 048
     Dates: start: 20090119, end: 20090201
  2. LORAZEPAM [Suspect]
     Indication: ANXIETY
     Dosage: 0 5MG; AS NEEDED ORAL;  0.25 MG; AS NEEDED; ORAL; .125 MG;AS NEEDED; ORAL
     Route: 048
     Dates: start: 20090201, end: 20090201
  3. LORAZEPAM [Suspect]
     Indication: ANXIETY
     Dosage: 0 5MG; AS NEEDED ORAL;  0.25 MG; AS NEEDED; ORAL; .125 MG;AS NEEDED; ORAL
     Route: 048
     Dates: start: 20090201

REACTIONS (7)
  - CONFUSIONAL STATE [None]
  - CRYING [None]
  - DRUG DEPENDENCE [None]
  - MALAISE [None]
  - MUSCLE SPASTICITY [None]
  - MUSCULOSKELETAL STIFFNESS [None]
  - WITHDRAWAL SYNDROME [None]
